FAERS Safety Report 21789154 (Version 1)
Quarter: 2022Q4

REPORT INFORMATION
  Report Type: Spontaneous
  Country: DE (occurrence: None)
  Receive Date: 20221228
  Receipt Date: 20221228
  Transmission Date: 20230112
  Serious: Yes (Other)
  Sender: FDA-Public Use
  Company Number: DE-ROCHE-3251924

PATIENT
  Age: 78 Year
  Sex: Female

DRUGS (14)
  1. RITUXIMAB [Suspect]
     Active Substance: RITUXIMAB
     Indication: Non-Hodgkin^s lymphoma
     Dosage: 6 CYCLES OF R-CHOP
     Route: 065
     Dates: start: 201809, end: 201901
  2. RITUXIMAB [Suspect]
     Active Substance: RITUXIMAB
     Dosage: 2 CYCLES
     Route: 065
     Dates: start: 2019
  3. RITUXIMAB [Suspect]
     Active Substance: RITUXIMAB
     Dosage: R-GDP
     Route: 065
     Dates: start: 202003, end: 202004
  4. RITUXIMAB [Suspect]
     Active Substance: RITUXIMAB
     Dosage: R-ICE
     Route: 065
     Dates: start: 202003, end: 202004
  5. CYCLOPHOSPHAMIDE\DOXORUBICIN\PREDNISONE\VINCRISTINE [Suspect]
     Active Substance: CYCLOPHOSPHAMIDE\DOXORUBICIN\PREDNISONE\VINCRISTINE
     Indication: Non-Hodgkin^s lymphoma
     Dosage: 6 CYCLES OF R-CHOP
     Route: 065
     Dates: start: 201809, end: 201901
  6. GEMCITABINE [Suspect]
     Active Substance: GEMCITABINE
     Indication: Non-Hodgkin^s lymphoma
     Dosage: R-GDP
     Route: 065
     Dates: start: 202003, end: 202004
  7. CISPLATIN [Suspect]
     Active Substance: CISPLATIN
     Indication: Non-Hodgkin^s lymphoma
     Dosage: R-GDP
     Route: 065
     Dates: start: 202003, end: 202004
  8. DEXAMETHASONE [Suspect]
     Active Substance: DEXAMETHASONE
     Indication: Non-Hodgkin^s lymphoma
     Dosage: R-GDP
     Route: 065
     Dates: start: 202003, end: 202004
  9. IFOSFAMIDE [Suspect]
     Active Substance: IFOSFAMIDE
     Indication: Non-Hodgkin^s lymphoma
     Dosage: R-GDP
     Route: 065
     Dates: start: 202003, end: 202004
  10. CARBOPLATIN [Suspect]
     Active Substance: CARBOPLATIN
     Indication: Non-Hodgkin^s lymphoma
     Dosage: R-GDP
     Route: 065
     Dates: start: 202003, end: 202004
  11. ETOPOSIDE [Suspect]
     Active Substance: ETOPOSIDE
     Indication: Non-Hodgkin^s lymphoma
     Dosage: R-GDP
     Route: 065
     Dates: start: 202003, end: 202004
  12. CYCLOPHOSPHAMIDE [Suspect]
     Active Substance: CYCLOPHOSPHAMIDE
     Indication: Non-Hodgkin^s lymphoma
     Route: 065
     Dates: start: 20200501, end: 20200501
  13. CARMUSTINE [Suspect]
     Active Substance: CARMUSTINE
     Indication: Non-Hodgkin^s lymphoma
     Route: 065
     Dates: start: 20200501, end: 20200501
  14. MELPHALAN [Suspect]
     Active Substance: MELPHALAN
     Indication: Non-Hodgkin^s lymphoma
     Route: 065
     Dates: start: 20200501, end: 20200501

REACTIONS (1)
  - Diffuse large B-cell lymphoma recurrent [Not Recovered/Not Resolved]

NARRATIVE: CASE EVENT DATE: 20200101
